FAERS Safety Report 9311395 (Version 4)
Quarter: 2013Q3

REPORT INFORMATION
  Report Type: Report from Study
  Country: CA (occurrence: CA)
  Receive Date: 20130528
  Receipt Date: 20130904
  Transmission Date: 20140515
  Serious: Yes (Hospitalization, Other)
  Sender: FDA-Public Use
  Company Number: CA-ROCHE-1227713

PATIENT
  Age: 64 Year
  Sex: Male
  Weight: 97 kg

DRUGS (6)
  1. RITUXAN [Suspect]
     Indication: MANTLE CELL LYMPHOMA
     Route: 042
     Dates: start: 201201
  2. RITUXAN [Suspect]
     Route: 042
     Dates: start: 20130530, end: 20130731
  3. DOXORUBICIN [Suspect]
     Indication: MANTLE CELL LYMPHOMA
     Route: 042
     Dates: start: 201202
  4. CYCLOPHOSPHAMIDE [Suspect]
     Indication: MANTLE CELL LYMPHOMA
     Route: 042
     Dates: start: 201202
  5. VINCRISTINE [Suspect]
     Indication: MANTLE CELL LYMPHOMA
     Route: 042
     Dates: start: 201202
  6. ACYCLOVIR [Concomitant]

REACTIONS (15)
  - Pneumonia [Recovered/Resolved]
  - Haemoglobin decreased [Not Recovered/Not Resolved]
  - Asthenia [Not Recovered/Not Resolved]
  - Dyspnoea [Not Recovered/Not Resolved]
  - Swelling [Unknown]
  - Platelet count decreased [Unknown]
  - White blood cell count decreased [Unknown]
  - Neutrophil count decreased [Unknown]
  - Splenomegaly [Unknown]
  - Pyrexia [Unknown]
  - Urticaria [Unknown]
  - Chills [Unknown]
  - Fatigue [Not Recovered/Not Resolved]
  - Vomiting [Unknown]
  - Disease progression [Not Recovered/Not Resolved]
